FAERS Safety Report 5202482-4 (Version None)
Quarter: 2006Q4

REPORT INFORMATION
  Report Type: 
  Country: None (occurrence: None)
  Receive Date: 20061010
  Receipt Date: 20060828
  Transmission Date: 20070319
  Serious: Yes (Other)
  Sender: FDA-Public Use
  Company Number: NM-AE-06-006

PATIENT
  Age: 65 Year
  Sex: Male
  Weight: 108.8633 kg

DRUGS (6)
  1. BIDIL [Suspect]
     Dosage: BID ORAL
     Route: 048
     Dates: start: 20060421, end: 20060623
  2. COREG [Suspect]
     Indication: CARDIOMYOPATHY
     Dosage: 12.5MG BID ORAL
     Route: 048
     Dates: start: 20060127
  3. AMIODARONE HCL [Concomitant]
  4. WARFARIN SODIUM [Concomitant]
  5. FUROSEMIDE [Concomitant]
  6. VALSARTAN [Concomitant]

REACTIONS (2)
  - DIZZINESS [None]
  - SYNCOPE [None]
